FAERS Safety Report 20686237 (Version 1)
Quarter: 2022Q2

REPORT INFORMATION
  Report Type: Spontaneous
  Country: US (occurrence: US)
  Receive Date: 20220407
  Receipt Date: 20220407
  Transmission Date: 20220721
  Serious: No
  Sender: FDA-Public Use
  Company Number: US-JAZZ-2022-US-002998

PATIENT
  Sex: Female

DRUGS (24)
  1. SUNOSI [Suspect]
     Active Substance: SOLRIAMFETOL
     Indication: Product used for unknown indication
     Dosage: 75 MILLIGRAM
     Route: 048
     Dates: start: 20011211
  2. SUNOSI [Suspect]
     Active Substance: SOLRIAMFETOL
     Dosage: 37.5 MILLIGRAM, QD
  3. ADDERALL [Suspect]
     Active Substance: AMPHETAMINE ASPARTATE\AMPHETAMINE SULFATE\DEXTROAMPHETAMINE SACCHARATE\DEXTROAMPHETAMINE SULFATE
     Indication: Product used for unknown indication
     Dosage: UNK
  4. VITAMIN B COMPLEX [Concomitant]
     Active Substance: CYANOCOBALAMIN\DEXPANTHENOL\NIACINAMIDE\PYRIDOXINE HYDROCHLORIDE\RIBOFLAVIN 5^-PHOSPHATE SODIUM\THIA
     Route: 048
  5. ASPIRIN [Concomitant]
     Active Substance: ASPIRIN
     Route: 048
  6. WELLBUTRIN SR [Concomitant]
     Active Substance: BUPROPION HYDROCHLORIDE
     Dosage: TAKE 150 MG, BID
     Route: 048
     Dates: start: 20210521
  7. DIALYVITE VITAMIN D 5000 [Concomitant]
  8. D-HIST D [Concomitant]
     Route: 048
  9. EPIPEN [Concomitant]
     Active Substance: EPINEPHRINE
     Dosage: UNK
     Dates: start: 20210609
  10. FISH OIL\OMEGA-3 FATTY ACIDS [Concomitant]
     Active Substance: FISH OIL\OMEGA-3 FATTY ACIDS
     Dosage: UNK
     Dates: start: 20211005
  11. MOMETASONE FUROATE [Concomitant]
     Active Substance: MOMETASONE FUROATE
     Dosage: SHAKE LIQUID AND USE 1 TO 2 SPRAYS IN EACH NOSTRIL, QD
     Route: 045
     Dates: start: 20210519
  12. XYZAL [Concomitant]
     Active Substance: LEVOCETIRIZINE DIHYDROCHLORIDE
  13. ATIVAN [Concomitant]
     Active Substance: LORAZEPAM
     Dosage: TAKE1/2 TABLET AS NEEDED
     Route: 048
     Dates: start: 20210217
  14. MAGNESIUM OXIDE [Concomitant]
     Active Substance: MAGNESIUM OXIDE
     Dosage: POWDER
     Dates: start: 20211005
  15. MAGNESIUM OXIDE [Concomitant]
     Active Substance: MAGNESIUM OXIDE
     Dosage: TABLET
  16. MELATONIN [Concomitant]
     Active Substance: MELATONIN
     Dosage: 1 MG, CAPSULE
     Route: 048
     Dates: start: 20211005
  17. MELATONIN [Concomitant]
     Active Substance: MELATONIN
     Dosage: 5 MG
     Route: 048
  18. ALDACTONE [Concomitant]
     Active Substance: SPIRONOLACTONE
     Route: 048
  19. EFFEXOR [Concomitant]
     Active Substance: VENLAFAXINE HYDROCHLORIDE
     Dosage: 1 CAPSULE WITH FOOD
  20. LIORESAL [Concomitant]
     Active Substance: BACLOFEN
     Dosage: TAKE 2 TABLETS, NIGHTLY
     Route: 048
  21. IRON [Concomitant]
     Active Substance: IRON
     Dosage: 65 MILLIGRAM
     Route: 048
  22. PROBIOTICS NOS [Concomitant]
     Active Substance: PROBIOTICS NOS
     Route: 048
  23. PHENERGAN [Concomitant]
     Active Substance: PROMETHAZINE HYDROCHLORIDE
     Indication: Migraine
     Dosage: TAKE 1 TABLET FOR 5 DAS AS NEEDED
     Route: 048
     Dates: start: 20210131
  24. .ALPHA.-TOCOPHEROL [Concomitant]
     Active Substance: .ALPHA.-TOCOPHEROL

REACTIONS (4)
  - Affective disorder [Unknown]
  - Depression [Unknown]
  - Anxiety [Unknown]
  - Feeling jittery [Unknown]
